FAERS Safety Report 6136924-7 (Version None)
Quarter: 2009Q1

REPORT INFORMATION
  Report Type: 
  Country: None (occurrence: None)
  Receive Date: 20090330
  Receipt Date: 20090320
  Transmission Date: 20090719
  Serious: Yes (Disabling)
  Sender: FDA-Public Use
  Company Number: US-MERCK-0903USA03955

PATIENT
  Sex: Female

DRUGS (5)
  1. ZOCOR [Suspect]
     Indication: BLOOD CHOLESTEROL
     Route: 048
  2. DEPAKOTE ER [Concomitant]
     Route: 065
  3. COGENTIN [Concomitant]
     Route: 048
  4. RISPERDAL [Concomitant]
     Route: 065
  5. PROZAC [Concomitant]
     Route: 065

REACTIONS (2)
  - ABASIA [None]
  - ADVERSE EVENT [None]
